FAERS Safety Report 9408918 (Version 1)
Quarter: 2013Q3

REPORT INFORMATION
  Report Type: Spontaneous
  Country: AT (occurrence: AT)
  Receive Date: 20130719
  Receipt Date: 20130719
  Transmission Date: 20140515
  Serious: Yes (Life-Threatening, Hospitalization)
  Sender: FDA-Public Use
  Company Number: AT-ROCHE-1247228

PATIENT
  Age: 76 Year
  Sex: Male
  Weight: 79 kg

DRUGS (2)
  1. XELODA [Suspect]
     Indication: COLON CANCER
     Route: 048
     Dates: start: 20130620, end: 20130703
  2. PANTOLOC [Concomitant]
     Indication: GASTRITIS
     Route: 048
     Dates: start: 20130528

REACTIONS (5)
  - Infection [Unknown]
  - Mucosal inflammation [Unknown]
  - Diarrhoea [Unknown]
  - Viral infection [Unknown]
  - Febrile neutropenia [Unknown]
